FAERS Safety Report 7494281-8 (Version None)
Quarter: 2011Q2

REPORT INFORMATION
  Report Type: 
  Country: None (occurrence: None)
  Receive Date: 20110520
  Receipt Date: 20110119
  Transmission Date: 20111010
  Serious: Yes (Hospitalization, Other)
  Sender: FDA-Public Use
  Company Number: US-BAYER-201012479NA

PATIENT
  Age: 39 Year
  Sex: Female
  Weight: 100 kg

DRUGS (39)
  1. AZOR [Concomitant]
     Indication: HYPERTENSION
     Dosage: UNK, QD
     Route: 048
  2. OXYCODONE HCL [Concomitant]
  3. CLINDAMYCIN [Concomitant]
  4. NITROFURANTOIN [Concomitant]
  5. WELLBUTRIN XL [Concomitant]
     Dosage: 150 MG, QD
     Route: 048
     Dates: start: 20080714
  6. STRATTERA [Concomitant]
     Dosage: 80 MG, QD
     Route: 048
  7. YASMIN [Suspect]
     Indication: MIGRAINE
     Dosage: UNK
     Route: 048
     Dates: start: 20070901, end: 20080701
  8. YASMIN [Suspect]
     Indication: ACNE
  9. ONDANSETRON [Concomitant]
  10. ATIVAN [Concomitant]
     Dosage: 0.5 MG, UNK
     Route: 048
  11. PERCOCET [Concomitant]
     Route: 048
  12. BUSPIRONE HCL [Concomitant]
  13. DURADRIN [Concomitant]
  14. DICYCLOMINE [Concomitant]
  15. PROVENTIL-HFA [Concomitant]
     Route: 048
  16. YAZ [Suspect]
     Indication: ACNE
  17. LEXAPRO [Concomitant]
     Indication: PANIC ATTACK
  18. BUSPAR [Concomitant]
     Dosage: 7.5 MG, BID
     Route: 048
  19. ATENOLOL [Concomitant]
     Dosage: 25 MG, UNK
     Route: 048
  20. NAPROSYN [Concomitant]
     Dosage: 500 MG, PRN
     Route: 048
  21. YAZ [Suspect]
     Indication: ORAL CONTRACEPTION
  22. NAPROXEN [Concomitant]
     Dosage: 500 MG, PRN
     Route: 048
  23. LORATADINE [Concomitant]
     Dosage: 10 MG, UNK
     Route: 048
  24. FLUCONAZOLE [Concomitant]
  25. DICLOFENAC SODIUM [Concomitant]
  26. ULTRACET [Concomitant]
     Dosage: UNK UNK, PRN
     Route: 048
  27. PHENERGAN HCL [Concomitant]
     Dosage: 25 MG, PRN
     Route: 048
  28. PROVENTIL [Concomitant]
  29. YASMIN [Suspect]
     Indication: ORAL CONTRACEPTION
  30. LEXAPRO [Concomitant]
     Indication: ANXIETY
     Dosage: 40 MG, QD
     Route: 048
  31. AVELOX [Concomitant]
     Dosage: 400 MG, UNK
     Route: 048
  32. PROMETHAZINE [Concomitant]
  33. AMLODIPINE [Concomitant]
  34. TRAMADOL HCL [Concomitant]
  35. CLONIDINE [Concomitant]
     Dosage: 5 MG, UNK
     Route: 048
  36. YAZ [Suspect]
     Indication: MIGRAINE
     Dosage: UNK
     Route: 048
     Dates: start: 20060701
  37. TRIMETHOPRIM [Concomitant]
  38. XANAX [Concomitant]
     Dosage: 0.25 MG, PRN
     Route: 048
     Dates: start: 20080714
  39. BENICAR [Concomitant]
     Dosage: 40 MG, QD
     Route: 048

REACTIONS (5)
  - CHOLECYSTITIS CHRONIC [None]
  - CHOLELITHIASIS [None]
  - NAUSEA [None]
  - BACK PAIN [None]
  - DYSPEPSIA [None]
